FAERS Safety Report 16105051 (Version 1)
Quarter: 2019Q2

REPORT INFORMATION
  Report Type: Spontaneous
  Country: US (occurrence: US)
  Receive Date: 20190321
  Receipt Date: 20190321
  Transmission Date: 20190711
  Serious: Yes (Hospitalization)
  Sender: FDA-Public Use
  Company Number: None

PATIENT
  Age: 24 Year
  Sex: Female
  Weight: 50.85 kg

DRUGS (5)
  1. ACETAMINOPHEN. [Concomitant]
     Active Substance: ACETAMINOPHEN
  2. PREDNISONE. [Concomitant]
     Active Substance: PREDNISONE
  3. SODIUM CHLORIDE FOR INJECTION [Suspect]
     Active Substance: SODIUM CHLORIDE
     Route: 042
  4. REMICADE [Suspect]
     Active Substance: INFLIXIMAB
     Indication: CROHN^S DISEASE
     Dosage: ?          OTHER FREQUENCY:EVERY 8 WEEKS;?
     Route: 041
     Dates: start: 20180423, end: 20190321
  5. DIPHENHYDRAMINE. [Concomitant]
     Active Substance: DIPHENHYDRAMINE

REACTIONS (6)
  - Erythema [None]
  - Headache [None]
  - Hyperventilation [None]
  - Flushing [None]
  - Vomiting [None]
  - Pruritus [None]

NARRATIVE: CASE EVENT DATE: 20190321
